FAERS Safety Report 26152843 (Version 1)
Quarter: 2025Q4

REPORT INFORMATION
  Report Type: Report from Study
  Country: US (occurrence: US)
  Receive Date: 20251214
  Receipt Date: 20251214
  Transmission Date: 20260118
  Serious: Yes (Other)
  Sender: ABBVIE
  Company Number: US-ABBVIE-5773964

PATIENT
  Age: 63 Year
  Sex: Female

DRUGS (4)
  1. RINVOQ [Suspect]
     Active Substance: UPADACITINIB
     Indication: Alopecia
     Dosage: STRENGTH:15MG
     Route: 048
     Dates: start: 2023, end: 2023
  2. RINVOQ [Suspect]
     Active Substance: UPADACITINIB
     Indication: Alopecia
     Dosage: STRENGTH: 15MG
     Route: 048
     Dates: start: 202404, end: 2024
  3. RINVOQ [Suspect]
     Active Substance: UPADACITINIB
     Indication: Alopecia
     Dosage: STRENGTH:15MG?15 MG TABLET 1/2 TABLET BY MOUTH ONCE DAILY
     Route: 048
     Dates: start: 202310, end: 202404
  4. RINVOQ [Suspect]
     Active Substance: UPADACITINIB
     Indication: Alopecia
     Dosage: STRENGTH: 15MG
     Route: 048
     Dates: start: 202510

REACTIONS (4)
  - Surgery [Unknown]
  - Incorrect dose administered [Unknown]
  - Off label use [Unknown]
  - Alopecia [Recovering/Resolving]

NARRATIVE: CASE EVENT DATE: 20230101
